FAERS Safety Report 23449398 (Version 1)
Quarter: 2024Q1

REPORT INFORMATION
  Report Type: Spontaneous
  Country: HR (occurrence: HR)
  Receive Date: 20240129
  Receipt Date: 20240129
  Transmission Date: 20240410
  Serious: Yes (Death, Hospitalization, Other)
  Sender: FDA-Public Use
  Company Number: HR-BoehringerIngelheim-2024-BI-004639

PATIENT

DRUGS (7)
  1. EMPAGLIFLOZIN [Suspect]
     Active Substance: EMPAGLIFLOZIN
     Indication: Product used for unknown indication
  2. APIXABAN [Suspect]
     Active Substance: APIXABAN
     Indication: Product used for unknown indication
  3. DIAZEPAM [Suspect]
     Active Substance: DIAZEPAM
     Indication: Product used for unknown indication
  4. FUROSEMIDE [Suspect]
     Active Substance: FUROSEMIDE
     Indication: Product used for unknown indication
  5. EPLERENONE [Suspect]
     Active Substance: EPLERENONE
     Indication: Product used for unknown indication
  6. PANTOPRAZOLE [Suspect]
     Active Substance: PANTOPRAZOLE
     Indication: Product used for unknown indication
  7. PERINDOPRIL [Suspect]
     Active Substance: PERINDOPRIL
     Indication: Product used for unknown indication

REACTIONS (11)
  - Renal impairment [Fatal]
  - Cardiac failure [Fatal]
  - Anaemia [Fatal]
  - Cardiac amyloidosis [Unknown]
  - Pleural effusion [Unknown]
  - Morganella infection [Unknown]
  - Pseudomonas infection [Unknown]
  - Peripheral swelling [Unknown]
  - Dyspnoea [Unknown]
  - Oedema peripheral [Unknown]
  - Generalised oedema [Unknown]

NARRATIVE: CASE EVENT DATE: 20230101
